FAERS Safety Report 4518700-1 (Version None)
Quarter: 2004Q4

REPORT INFORMATION
  Report Type: 
  Country: None (occurrence: None)
  Receive Date: 20041201
  Receipt Date: 20041119
  Transmission Date: 20050328
  Serious: Yes (Hospitalization, Disabling)
  Sender: FDA-Public Use
  Company Number: GBWYE228924NOV04

PATIENT

DRUGS (2)
  1. EFFEXOR [Suspect]
     Indication: DEPRESSION
  2. OLANZAPINE [Suspect]
     Indication: DEPRESSION

REACTIONS (4)
  - DRUG EXPOSURE DURING PREGNANCY [None]
  - FEEDING PROBLEM IN NEWBORN [None]
  - HYPOKINESIA [None]
  - LETHARGY [None]
